FAERS Safety Report 18358122 (Version 1)
Quarter: 2020Q4

REPORT INFORMATION
  Report Type: Spontaneous
  Country: DK (occurrence: DK)
  Receive Date: 20201008
  Receipt Date: 20201008
  Transmission Date: 20210114
  Serious: Yes (Other)
  Sender: FDA-Public Use
  Company Number: DK-ROCHE-2691503

PATIENT
  Age: 55 Year
  Sex: Female
  Weight: 63 kg

DRUGS (4)
  1. OCREVUS [Suspect]
     Active Substance: OCRELIZUMAB
     Indication: MULTIPLE SCLEROSIS
     Route: 042
     Dates: start: 20190221
  2. ALTIFEX [Concomitant]
     Indication: ADVERSE DRUG REACTION
     Dosage: STRENGHT: 180 MG. ?DOSAGE: 1 TABLET EVERY 6. MONTHS OR 1 TABLET AS NECESSARY
     Route: 048
     Dates: start: 20190521
  3. MEDROL [Concomitant]
     Active Substance: METHYLPREDNISOLONE
     Indication: STEROID THERAPY
     Dosage: STRENGTH: 100 MG.
     Route: 048
     Dates: start: 20190221
  4. PARACETAMOL B BRAUN [Concomitant]
     Active Substance: ACETAMINOPHEN
     Indication: PYREXIA
     Dosage: STRENGTH: 500 MG.
     Route: 048
     Dates: start: 20190921

REACTIONS (1)
  - Arthritis reactive [Recovering/Resolving]

NARRATIVE: CASE EVENT DATE: 20200917
